FAERS Safety Report 15882610 (Version 5)
Quarter: 2021Q1

REPORT INFORMATION
  Report Type: Spontaneous
  Country: CA (occurrence: CA)
  Receive Date: 20190129
  Receipt Date: 20210325
  Transmission Date: 20210419
  Serious: Yes (Hospitalization, Other)
  Sender: FDA-Public Use
  Company Number: CA-CELLTRION INC.-2019CA018232

PATIENT

DRUGS (5)
  1. INFLECTRA [Suspect]
     Active Substance: INFLIXIMAB-DYYB
     Dosage: 5 MG/KG, EVERY 0, 2, 6 WEEKS, THEN EVERY 8 WEEKS
     Route: 042
     Dates: start: 20181227, end: 20181227
  2. INFLECTRA [Suspect]
     Active Substance: INFLIXIMAB-DYYB
     Dosage: 1 DF (DOSAGE UNKNOWN)
     Route: 065
  3. PREDNISONE. [Concomitant]
     Active Substance: PREDNISONE
     Dosage: 60 MG, UNK(TAPERING)
     Route: 065
     Dates: start: 201809
  4. INFLECTRA [Suspect]
     Active Substance: INFLIXIMAB-DYYB
     Indication: COLITIS ULCERATIVE
     Dosage: 5 MG/KG, EVERY 0, 2, 6 WEEKS, THEN EVERY 8 WEEKS
     Route: 042
     Dates: start: 20181214
  5. MEZAVANT [Concomitant]
     Active Substance: MESALAMINE
     Dosage: UNK
     Route: 065
     Dates: start: 201809

REACTIONS (9)
  - Diarrhoea [Not Recovered/Not Resolved]
  - Clostridium difficile infection [Unknown]
  - Swelling [Unknown]
  - Weight increased [Unknown]
  - Condition aggravated [Unknown]
  - Abdominal pain [Not Recovered/Not Resolved]
  - Therapy non-responder [Unknown]
  - Drug ineffective [Unknown]
  - Proctalgia [Not Recovered/Not Resolved]
